FAERS Safety Report 13143896 (Version 1)
Quarter: 2017Q1

REPORT INFORMATION
  Report Type: Spontaneous
  Country: US (occurrence: US)
  Receive Date: 20170124
  Receipt Date: 20170124
  Transmission Date: 20170428
  Serious: Yes (Other)
  Sender: FDA-Public Use
  Company Number: None

PATIENT
  Age: 61 Year
  Sex: Male

DRUGS (1)
  1. CIMZIA [Suspect]
     Active Substance: CERTOLIZUMAB PEGOL
     Indication: PSORIATIC ARTHROPATHY
     Route: 058
     Dates: start: 20160614

REACTIONS (5)
  - Psoriasis [None]
  - Disease recurrence [None]
  - Hepatic enzyme increased [None]
  - Hepatic steatosis [None]
  - Drug effect decreased [None]

NARRATIVE: CASE EVENT DATE: 20161101
